FAERS Safety Report 24994245 (Version 1)
Quarter: 2025Q1

REPORT INFORMATION
  Report Type: Report from Study
  Country: US (occurrence: US)
  Receive Date: 20250221
  Receipt Date: 20250221
  Transmission Date: 20250408
  Serious: Yes (Other)
  Sender: JAZZ
  Company Number: US-JAZZ PHARMACEUTICALS-2024-US-021791

PATIENT
  Sex: Female
  Weight: 60.3 kg

DRUGS (12)
  1. SODIUM OXYBATE [Suspect]
     Active Substance: SODIUM OXYBATE
     Indication: Narcolepsy
  2. SODIUM OXYBATE [Suspect]
     Active Substance: SODIUM OXYBATE
     Indication: Cataplexy
     Dosage: 6 GRAM, QD
  3. SODIUM OXYBATE [Suspect]
     Active Substance: SODIUM OXYBATE
     Indication: Somnolence
  4. SODIUM OXYBATE [Suspect]
     Active Substance: SODIUM OXYBATE
     Dosage: 3 GRAM, BID
  5. SODIUM OXYBATE [Suspect]
     Active Substance: SODIUM OXYBATE
     Dosage: 3.75 GRAM, BID
     Dates: start: 20241223
  6. SODIUM OXYBATE [Suspect]
     Active Substance: SODIUM OXYBATE
     Dosage: 4 GRAM, BID
  7. SODIUM OXYBATE [Suspect]
     Active Substance: SODIUM OXYBATE
     Dosage: 4.5 GRAM, BID
  8. ADDERALL [Concomitant]
     Active Substance: AMPHETAMINE ASPARTATE\AMPHETAMINE SULFATE\DEXTROAMPHETAMINE SACCHARATE\DEXTROAMPHETAMINE SULFATE
  9. ULTRAM ER [Concomitant]
     Active Substance: TRAMADOL HYDROCHLORIDE
  10. ANAPROX D.S. [Concomitant]
  11. ATIVAN [Concomitant]
     Active Substance: LORAZEPAM
  12. AMOXICILLIN [Concomitant]
     Active Substance: AMOXICILLIN
     Dates: start: 20250110, end: 20250120

REACTIONS (14)
  - Surgery [Unknown]
  - Feeling abnormal [Unknown]
  - COVID-19 [Unknown]
  - Gait disturbance [Unknown]
  - Tooth infection [Unknown]
  - Nausea [Not Recovered/Not Resolved]
  - Dizziness [Unknown]
  - Anxiety [Unknown]
  - Vomiting [Unknown]
  - Drug intolerance [Unknown]
  - Off label use [Unknown]
  - Product dose omission issue [Unknown]
  - Drug ineffective [Unknown]
  - Wrong technique in product usage process [Unknown]
